FAERS Safety Report 12760612 (Version 1)
Quarter: 2016Q3

REPORT INFORMATION
  Report Type: Report from Study
  Country: US (occurrence: US)
  Receive Date: 20160919
  Receipt Date: 20160919
  Transmission Date: 20161109
  Serious: Yes (Hospitalization)
  Sender: FDA-Public Use
  Company Number: PHEH2016US023140

PATIENT
  Age: 77 Year
  Sex: Female

DRUGS (1)
  1. ENTRESTO [Suspect]
     Active Substance: SACUBITRIL\VALSARTAN
     Indication: PRODUCT USED FOR UNKNOWN INDICATION
     Dosage: 100 MG/KG, BID
     Route: 048
     Dates: start: 20160611, end: 20160911

REACTIONS (1)
  - Neck injury [Recovering/Resolving]

NARRATIVE: CASE EVENT DATE: 20160711
